FAERS Safety Report 5770868-5 (Version None)
Quarter: 2008Q2

REPORT INFORMATION
  Report Type: 
  Country: None (occurrence: None)
  Receive Date: 20080613
  Receipt Date: 20080527
  Transmission Date: 20081010
  Serious: No
  Sender: FDA-Public Use
  Company Number: US-ABBOTT-08P-163-0452414-00

PATIENT
  Sex: Female
  Weight: 58.112 kg

DRUGS (9)
  1. HUMIRA [Suspect]
     Indication: RHEUMATOID ARTHRITIS
     Route: 058
     Dates: start: 20070501
  2. VICODIN [Concomitant]
     Indication: PAIN
     Route: 048
  3. MORPHINE [Concomitant]
     Indication: PAIN
     Route: 048
  4. MOMETASONE FUROATE [Concomitant]
     Indication: HYPERSENSITIVITY
  5. AZELASTINE HCL [Concomitant]
     Indication: HYPERSENSITIVITY
  6. SALBUTAMOL SULFATE [Concomitant]
     Indication: ASTHMA
  7. FLUTICASONE PROPIONATE [Concomitant]
     Indication: ASTHMA
  8. AMYTRIPTILLINE [Concomitant]
     Indication: INSOMNIA
     Route: 048
  9. FLUOXETINE HYDROCHLORIDE [Concomitant]
     Indication: PAIN
     Route: 048

REACTIONS (5)
  - DYSPNOEA [None]
  - FALL [None]
  - HEAD INJURY [None]
  - HEART VALVE INCOMPETENCE [None]
  - VOMITING [None]
